FAERS Safety Report 5868822-8 (Version None)
Quarter: 2008Q3

REPORT INFORMATION
  Report Type: 
  Country: None (occurrence: None)
  Receive Date: 20080902
  Receipt Date: 20080902
  Transmission Date: 20090109
  Serious: Yes (Other)
  Sender: FDA-Public Use
  Company Number: None

PATIENT
  Sex: Female
  Weight: 51.7101 kg

DRUGS (3)
  1. PROMETHAZINE [Suspect]
     Indication: NAUSEA
     Dosage: 12.5 MG ONCE PO
     Route: 048
     Dates: start: 20080830, end: 20080830
  2. PREVACID [Suspect]
     Indication: ABDOMINAL PAIN UPPER
     Dosage: 30 MG ONCE DAILY PO
     Route: 048
     Dates: start: 20080718, end: 20080830
  3. PREVACID [Suspect]
     Indication: NAUSEA
     Dosage: 30 MG ONCE DAILY PO
     Route: 048
     Dates: start: 20080718, end: 20080830

REACTIONS (6)
  - BLOOD GLUCOSE DECREASED [None]
  - BLOOD GLUCOSE FLUCTUATION [None]
  - DRUG INEFFECTIVE [None]
  - EDUCATIONAL PROBLEM [None]
  - FALL [None]
  - IMPAIRED WORK ABILITY [None]
